FAERS Safety Report 25898647 (Version 1)
Quarter: 2025Q4

REPORT INFORMATION
  Report Type: Spontaneous
  Country: TR (occurrence: TR)
  Receive Date: 20251009
  Receipt Date: 20251009
  Transmission Date: 20260117
  Serious: Yes (Other)
  Sender: ROCHE
  Company Number: TR-ROCHE-10000405798

PATIENT
  Age: 37 Year
  Sex: Male

DRUGS (7)
  1. RITUXIMAB [Suspect]
     Active Substance: RITUXIMAB
     Indication: Herpes simplex encephalitis
     Route: 065
  2. METHYLPREDNISOLONE [Suspect]
     Active Substance: METHYLPREDNISOLONE
     Indication: Encephalitis autoimmune
     Route: 042
  3. ACYCLOVIR [Concomitant]
     Active Substance: ACYCLOVIR
     Indication: Herpes simplex encephalitis
  4. LEVETIRACETAM [Concomitant]
     Active Substance: LEVETIRACETAM
  5. PHENYTOIN [Concomitant]
     Active Substance: PHENYTOIN
  6. LACOSAMIDE [Concomitant]
     Active Substance: LACOSAMIDE
  7. MIDAZOLAM [Concomitant]
     Active Substance: MIDAZOLAM

REACTIONS (2)
  - Off label use [Unknown]
  - Sepsis [Unknown]
